FAERS Safety Report 21663692 (Version 1)
Quarter: 2022Q4

REPORT INFORMATION
  Report Type: Spontaneous
  Country: JP (occurrence: JP)
  Receive Date: 20221130
  Receipt Date: 20221130
  Transmission Date: 20230113
  Serious: Yes (Hospitalization)
  Sender: FDA-Public Use
  Company Number: JP-DSJP-DSJ-2022-143085

PATIENT
  Age: 5 Decade
  Sex: Female
  Weight: 53.2 kg

DRUGS (23)
  1. OLMESARTAN MEDOXOMIL [Suspect]
     Active Substance: OLMESARTAN MEDOXOMIL
     Indication: Product used for unknown indication
     Dosage: 40 MG, QD
     Route: 048
  2. PREDNISOLONE [Concomitant]
     Active Substance: PREDNISOLONE
     Indication: Lupus nephritis
     Dosage: 15MG/DAY
     Route: 048
  3. PREDNISOLONE [Concomitant]
     Active Substance: PREDNISOLONE
     Dosage: 30MG/DAY
     Route: 048
  4. PREDNISOLONE [Concomitant]
     Active Substance: PREDNISOLONE
     Dosage: 40MG/DAY
     Route: 048
     Dates: start: 20211215
  5. PREDNISOLONE [Concomitant]
     Active Substance: PREDNISOLONE
     Dosage: 30MG/DAY
     Route: 048
  6. PREDNISOLONE [Concomitant]
     Active Substance: PREDNISOLONE
     Dosage: 20MG/DAY
     Route: 048
  7. PREDNISOLONE [Concomitant]
     Active Substance: PREDNISOLONE
     Dosage: 17.5MG/DAY
     Route: 048
  8. TACROLIMUS [Concomitant]
     Active Substance: TACROLIMUS
     Indication: Lupus nephritis
     Dosage: 2MG/DAY
     Route: 048
  9. TACROLIMUS [Concomitant]
     Active Substance: TACROLIMUS
     Dosage: 3MG/DAY
     Route: 048
  10. AMLODIPINE BESYLATE [Concomitant]
     Active Substance: AMLODIPINE BESYLATE
     Dosage: 10MG/DAY
     Route: 048
  11. VONOPRAZAN FUMARATE [Concomitant]
     Active Substance: VONOPRAZAN FUMARATE
     Dosage: 20MG/DAY
     Route: 048
  12. CLOSTRIDIUM BUTYRICUM SPORES STRAIN M-55 [Concomitant]
     Active Substance: CLOSTRIDIUM BUTYRICUM SPORES STRAIN M-55
     Dosage: 120MG/DAY
     Route: 048
  13. ST [Concomitant]
     Dosage: 1DF/MON, WED, FRI
     Route: 048
  14. REBAMIPIDE [Concomitant]
     Active Substance: REBAMIPIDE
     Dosage: 300MG/DAY
     Route: 048
  15. SODIUM ALGINATE [Concomitant]
     Active Substance: SODIUM ALGINATE
     Dosage: 80MG/DAY
     Route: 048
  16. ALENDRONATE [Concomitant]
     Active Substance: ALENDRONATE SODIUM
     Dosage: 35 MG, ONCE EVERY 1 WK
     Route: 048
  17. CELLCEPT [Concomitant]
     Active Substance: MYCOPHENOLATE MOFETIL
     Indication: Lupus nephritis
     Dosage: 2000MG/DAY
     Route: 048
  18. CELLCEPT [Concomitant]
     Active Substance: MYCOPHENOLATE MOFETIL
     Dosage: 2250MG/DAY
     Route: 048
     Dates: start: 20211215
  19. CELLCEPT [Concomitant]
     Active Substance: MYCOPHENOLATE MOFETIL
     Dosage: 1750MG/DAY
     Route: 048
     Dates: start: 20220202
  20. CELLCEPT [Concomitant]
     Active Substance: MYCOPHENOLATE MOFETIL
     Dosage: 1500MG/DAY
     Route: 048
  21. PLAQUENIL [Concomitant]
     Active Substance: HYDROXYCHLOROQUINE SULFATE
     Indication: Lupus nephritis
     Dosage: 200/400MG, QOD
  22. PLAQUENIL [Concomitant]
     Active Substance: HYDROXYCHLOROQUINE SULFATE
     Dosage: 300MG/DAY
     Route: 065
  23. BELIMUMAB [Concomitant]
     Active Substance: BELIMUMAB
     Indication: Lupus nephritis
     Dosage: 200 MG, ONCE EVERY 1 WK
     Route: 065

REACTIONS (1)
  - Mesenteric artery embolism [Recovered/Resolved]
